FAERS Safety Report 6742063-4 (Version None)
Quarter: 2010Q2

REPORT INFORMATION
  Report Type: 
  Country: None (occurrence: None)
  Receive Date: 20100526
  Receipt Date: 20100518
  Transmission Date: 20101027
  Serious: Yes (Hospitalization)
  Sender: FDA-Public Use
  Company Number: US-ASTRAZENECA-2010SE22683

PATIENT
  Age: 65 Year
  Sex: Female

DRUGS (4)
  1. DAPTOMYCIN [Suspect]
     Indication: OSTEOMYELITIS
     Route: 042
  2. DAPTOMYCIN [Suspect]
     Indication: CELLULITIS
     Route: 042
  3. MEROPENEM [Suspect]
     Indication: OSTEOMYELITIS
     Route: 042
  4. MEROPENEM [Suspect]
     Indication: CELLULITIS
     Route: 042

REACTIONS (1)
  - RESPIRATORY DISTRESS [None]
